FAERS Safety Report 11982518 (Version 1)
Quarter: 2016Q1

REPORT INFORMATION
  Report Type: Spontaneous
  Country: US (occurrence: None)
  Receive Date: 20160129
  Receipt Date: 20160129
  Transmission Date: 20160526
  Serious: Yes (Other)
  Sender: FDA-Public Use
  Company Number: None

PATIENT
  Age: 65 Year
  Sex: Female
  Weight: 73.94 kg

DRUGS (7)
  1. CRESTOR [Concomitant]
     Active Substance: ROSUVASTATIN CALCIUM
  2. SYNTHROID [Concomitant]
     Active Substance: LEVOTHYROXINE SODIUM
  3. HUMALOG [Concomitant]
     Active Substance: INSULIN LISPRO
  4. INSULIN PUMP [Concomitant]
     Active Substance: INSULIN NOS
  5. DEXILANT [Suspect]
     Active Substance: DEXLANSOPRAZOLE
     Indication: GASTROOESOPHAGEAL REFLUX DISEASE
     Dosage: 1 PILL ONCE DAILY TAKEN BY MOUTH
     Route: 048
  6. VITAMIN D [Concomitant]
     Active Substance: CHOLECALCIFEROL
  7. QUINNAPRIL [Concomitant]

REACTIONS (3)
  - Haemorrhoids [None]
  - Incorrect drug administration duration [None]
  - Large intestine polyp [None]

NARRATIVE: CASE EVENT DATE: 20160126
